FAERS Safety Report 15775435 (Version 6)
Quarter: 2019Q2

REPORT INFORMATION
  Report Type: Report from Study
  Country: DE (occurrence: DE)
  Receive Date: 20181231
  Receipt Date: 20190626
  Transmission Date: 20190711
  Serious: Yes (Hospitalization)
  Sender: FDA-Public Use
  Company Number: DE-ROCHE-2223194

PATIENT
  Age: 50 Year
  Sex: Male

DRUGS (6)
  1. LYRICA [Concomitant]
     Active Substance: PREGABALIN
     Indication: OFF LABEL USE
     Dosage: 1-0-1
     Route: 065
  2. OCREVUS [Suspect]
     Active Substance: OCRELIZUMAB
     Indication: SECONDARY PROGRESSIVE MULTIPLE SCLEROSIS
     Route: 042
     Dates: start: 20180830
  3. BACLOFEN. [Concomitant]
     Active Substance: BACLOFEN
     Indication: OFF LABEL USE
     Dosage: 1-0-1
     Route: 065
  4. FAMPYRA [Concomitant]
     Active Substance: DALFAMPRIDINE
     Indication: OFF LABEL USE
     Route: 065
  5. IBUPROFEN. [Concomitant]
     Active Substance: IBUPROFEN
     Indication: OFF LABEL USE
     Route: 065
  6. OCREVUS [Suspect]
     Active Substance: OCRELIZUMAB
     Indication: OFF LABEL USE
     Route: 042
     Dates: start: 20190314

REACTIONS (15)
  - Fall [Unknown]
  - Meniscus injury [Recovered/Resolved]
  - Arthralgia [Recovered/Resolved]
  - Dry skin [Recovered/Resolved]
  - Pruritus [Recovered/Resolved]
  - Skin atrophy [Unknown]
  - Rhinorrhoea [Unknown]
  - Nasopharyngitis [Recovered/Resolved]
  - Intentional product use issue [Unknown]
  - Lacrimation increased [Recovered/Resolved]
  - Back pain [Recovered/Resolved]
  - Spinal pain [Recovered/Resolved]
  - Gait disturbance [Recovered/Resolved]
  - Sneezing [Recovering/Resolving]
  - Off label use [Unknown]

NARRATIVE: CASE EVENT DATE: 20180830
